FAERS Safety Report 7486674-X (Version None)
Quarter: 2011Q2

REPORT INFORMATION
  Report Type: 
  Country: None (occurrence: None)
  Receive Date: 20110517
  Receipt Date: 20100816
  Transmission Date: 20111010
  Serious: No
  Sender: FDA-Public Use
  Company Number: US-NOVEN-ALL1-2010-04457

PATIENT

DRUGS (2)
  1. DAYTRANA [Suspect]
     Dosage: UNK MG, ONE HALF OF A UNKNOWN STRENGTH PATCH 1X/DAY:QD
     Route: 062
  2. INTUNIV [Concomitant]
     Dosage: 3 MG, 1X/DAY:QD
     Route: 048

REACTIONS (8)
  - GROWTH RETARDATION [None]
  - ABDOMINAL PAIN UPPER [None]
  - DRUG PRESCRIBING ERROR [None]
  - POLLAKIURIA [None]
  - HEADACHE [None]
  - WRONG TECHNIQUE IN DRUG USAGE PROCESS [None]
  - MALNUTRITION [None]
  - LETHARGY [None]
